FAERS Safety Report 16327348 (Version 1)
Quarter: 2019Q2

REPORT INFORMATION
  Report Type: Spontaneous
  Country: US (occurrence: US)
  Receive Date: 20190517
  Receipt Date: 20190517
  Transmission Date: 20190711
  Serious: Yes (Disabling, Other)
  Sender: FDA-Public Use
  Company Number: US-REGENERON PHARMACEUTICALS, INC.-2019-20428

PATIENT

DRUGS (2)
  1. EYLEA [Suspect]
     Active Substance: AFLIBERCEPT
     Indication: RETINAL VEIN OCCLUSION
     Dosage: 2 MG/0.05ML, Q4.5-5W, RIGHT EYE
     Route: 031
     Dates: start: 20140429, end: 20190219
  2. EYLEA [Suspect]
     Active Substance: AFLIBERCEPT
     Indication: MACULAR OEDEMA
     Dosage: 2 MG/0.05ML, Q4.5-5W, LAST DOSE, RIGHT EYE
     Dates: start: 20190219, end: 20190219

REACTIONS (4)
  - Vitrectomy [Unknown]
  - Retinal detachment [Recovering/Resolving]
  - Blindness unilateral [Unknown]
  - Endophthalmitis [Not Recovered/Not Resolved]

NARRATIVE: CASE EVENT DATE: 20190225
